FAERS Safety Report 15884152 (Version 5)
Quarter: 2020Q1

REPORT INFORMATION
  Report Type: Report from Study
  Country: JP (occurrence: JP)
  Receive Date: 20190129
  Receipt Date: 20200217
  Transmission Date: 20200409
  Serious: Yes (Disabling)
  Sender: FDA-Public Use
  Company Number: JP-ACTELION-A-CH2019-185480

PATIENT
  Age: 3 Year
  Sex: Male
  Weight: 6.23 kg

DRUGS (7)
  1. TRACLEER [Suspect]
     Active Substance: BOSENTAN
     Indication: PULMONARY ARTERIAL HYPERTENSION
     Dosage: 16MG AM, 8MG PM
     Route: 048
     Dates: start: 20180110
  2. JUVELA [Concomitant]
     Active Substance: .ALPHA.-TOCOPHEROL\RETINOL
  3. THYRADIN-S [Concomitant]
     Active Substance: LEVOTHYROXINE
  4. TRACLEER [Suspect]
     Active Substance: BOSENTAN
     Dosage: 8 MG, BID
     Route: 048
     Dates: start: 20171106, end: 20180109
  5. VITAMIN E [Concomitant]
     Active Substance: .ALPHA.-TOCOPHEROL
  6. ERYTHROCIN [Concomitant]
     Active Substance: ERYTHROMYCIN LACTOBIONATE
  7. PRANLUKAST [Concomitant]
     Active Substance: PRANLUKAST

REACTIONS (7)
  - Hypoxic-ischaemic encephalopathy [Recovered/Resolved with Sequelae]
  - Alanine aminotransferase increased [Recovering/Resolving]
  - Therapeutic hypothermia [Recovered/Resolved with Sequelae]
  - Hypopituitarism [Unknown]
  - Hepatic function abnormal [Recovering/Resolving]
  - Aspartate aminotransferase increased [Recovering/Resolving]
  - Cardio-respiratory arrest [Recovered/Resolved with Sequelae]

NARRATIVE: CASE EVENT DATE: 20180619
